FAERS Safety Report 9121395 (Version 5)
Quarter: 2013Q2

REPORT INFORMATION
  Report Type: Spontaneous
  Country: PR (occurrence: PR)
  Receive Date: 20130225
  Receipt Date: 20130417
  Transmission Date: 20140414
  Serious: Yes (Disabling)
  Sender: FDA-Public Use
  Company Number: PR-VERTEX PHARMACEUTICALS INC.-2013-002572

PATIENT
  Age: 35 Year
  Sex: Female

DRUGS (5)
  1. INCIVEK [Suspect]
     Indication: HEPATITIS C
     Dosage: UNK UNK, TID
     Route: 048
     Dates: start: 20121220, end: 20130211
  2. INTERFERON ALFA-2A [Suspect]
     Indication: HEPATITIS C
     Dosage: UNK
     Route: 058
     Dates: end: 20130211
  3. INTERFERON ALFA-2A [Suspect]
     Dosage: 1 ML, QW
     Dates: start: 20130215
  4. RIBAVIRIN [Suspect]
     Indication: HEPATITIS C
     Dosage: UNK
     Dates: end: 20130211
  5. RIBAVIRIN [Suspect]
     Dosage: 3 DF, QD
     Dates: start: 20130215

REACTIONS (1)
  - Dermatitis allergic [Recovered/Resolved]
